FAERS Safety Report 7609615-0 (Version None)
Quarter: 2011Q3

REPORT INFORMATION
  Report Type: 
  Country: None (occurrence: None)
  Receive Date: 20110714
  Receipt Date: 20110707
  Transmission Date: 20111222
  Serious: Yes (Other)
  Sender: FDA-Public Use
  Company Number: US-US-EMD SERONO, INC.-7069653

PATIENT
  Sex: Female
  Weight: 66 kg

DRUGS (1)
  1. REBIF [Suspect]
     Indication: PRODUCT USED FOR UNKNOWN INDICATION
     Route: 058
     Dates: start: 20100809

REACTIONS (5)
  - WEIGHT DECREASED [None]
  - HEART VALVE INCOMPETENCE [None]
  - INJECTION SITE HAEMATOMA [None]
  - PULMONARY HYPERTENSION [None]
  - INFLUENZA LIKE ILLNESS [None]
